FAERS Safety Report 24121236 (Version 1)
Quarter: 2024Q3

REPORT INFORMATION
  Report Type: Spontaneous
  Country: US (occurrence: None)
  Receive Date: 20240722
  Receipt Date: 20240722
  Transmission Date: 20241017
  Serious: Yes (Other)
  Sender: Public
  Company Number: None

PATIENT
  Age: 74 Year
  Sex: Male
  Weight: 80 kg

DRUGS (26)
  1. MYCOPHENOLIC ACID [Suspect]
     Active Substance: MYCOPHENOLIC ACID
     Indication: Organ transplant
     Dosage: FREQUENCY : TWICE A DAY;?
     Route: 048
     Dates: start: 20181022, end: 20240707
  2. SEROQUEL [Concomitant]
     Active Substance: QUETIAPINE FUMARATE
  3. ASPIRIN [Concomitant]
     Active Substance: ASPIRIN
  4. VITAMIN D3 [Concomitant]
     Active Substance: CHOLECALCIFEROL
  5. PROBIOTIC ADULT [Concomitant]
  6. ESCITALOPRAM [Concomitant]
     Active Substance: ESCITALOPRAM OXALATE
  7. HUMALOG [Concomitant]
     Active Substance: INSULIN LISPRO
  8. OXYCODONE [Concomitant]
     Active Substance: OXYCODONE
  9. TYLENOL [Concomitant]
     Active Substance: ACETAMINOPHEN
  10. CYANOCOBALAMIN [Concomitant]
     Active Substance: CYANOCOBALAMIN
  11. POSACONAZOLE [Concomitant]
     Active Substance: POSACONAZOLE
  12. PRAVASTATIN [Concomitant]
     Active Substance: PRAVASTATIN
  13. PREDNISONE [Concomitant]
     Active Substance: PREDNISONE
  14. VALGANCICLOVIR HYDROCHLORIDE [Concomitant]
     Active Substance: VALGANCICLOVIR HYDROCHLORIDE
  15. TACROLIMUS SUSPENSION [Concomitant]
  16. METOCLOPRAMIDE [Concomitant]
     Active Substance: METOCLOPRAMIDE
  17. ALBUTEROL SULFATE [Concomitant]
     Active Substance: ALBUTEROL SULFATE
  18. AZITHROMYCIN [Concomitant]
     Active Substance: AZITHROMYCIN
  19. ALENDRONATE [Concomitant]
     Active Substance: ALENDRONATE SODIUM
  20. CALCIUM 600-D [Concomitant]
  21. COLISTIMETHATE [Concomitant]
     Active Substance: COLISTIMETHATE SODIUM
  22. HYDRALAZINE [Concomitant]
     Active Substance: HYDRALAZINE HYDROCHLORIDE
  23. IPRATROPI/AIB [Concomitant]
  24. LANTUS SOLOSTAR [Concomitant]
     Active Substance: INSULIN GLARGINE
  25. MAGNESIUM OXIDE [Concomitant]
     Active Substance: MAGNESIUM OXIDE
  26. METOPROLOL SUCCINATE [Concomitant]
     Active Substance: METOPROLOL SUCCINATE

REACTIONS (1)
  - Throat cancer [None]

NARRATIVE: CASE EVENT DATE: 20240707
